FAERS Safety Report 4993270-2 (Version None)
Quarter: 2006Q1

REPORT INFORMATION
  Report Type: 
  Country: None (occurrence: None)
  Receive Date: 20060314
  Receipt Date: 20050708
  Transmission Date: 20060701
  Serious: Yes (Other)
  Sender: FDA-Public Use
  Company Number: 200511489BCC

PATIENT
  Age: 76 Year
  Sex: Female
  Weight: 83.9154 kg

DRUGS (3)
  1. ALEVE [Suspect]
     Indication: BACK PAIN
     Dosage: 220 MG, QD, ORAL
     Route: 048
     Dates: start: 20050405, end: 20050409
  2. LIPITOR [Concomitant]
  3. CLARITIN [Concomitant]

REACTIONS (1)
  - EPISTAXIS [None]
